FAERS Safety Report 9360163 (Version 1)
Quarter: 2013Q2

REPORT INFORMATION
  Report Type: Spontaneous
  Country: US (occurrence: None)
  Receive Date: 20130620
  Receipt Date: 20130620
  Transmission Date: 20140414
  Serious: No
  Sender: FDA-Public Use
  Company Number: None

PATIENT
  Age: 61 Year
  Sex: Female
  Weight: 64.86 kg

DRUGS (12)
  1. NASONEX [Suspect]
     Indication: MIDDLE EAR EFFUSION
     Dates: start: 20130420, end: 20130420
  2. GLUCOSAMINE [Concomitant]
  3. CHONDROITIN [Concomitant]
  4. YUCCA ROOT [Concomitant]
  5. HAWTHORNE [Concomitant]
  6. MAGNESIUM [Concomitant]
  7. ASPIRIN [Concomitant]
  8. JUVEN [Concomitant]
  9. LARGININE [Concomitant]
  10. LGLUJAMINE [Concomitant]
  11. CALCIUM [Concomitant]
  12. GNC LIVE FIT AND LEAVE VITAMINS [Concomitant]

REACTIONS (6)
  - Deafness [None]
  - Amnesia [None]
  - Hallucination [None]
  - Ulcer [None]
  - Bacterial infection [None]
  - Stenotrophomonas infection [None]
